FAERS Safety Report 4860547-0 (Version None)
Quarter: 2005Q4

REPORT INFORMATION
  Report Type: 
  Country: None (occurrence: None)
  Receive Date: 20051216
  Receipt Date: 20051205
  Transmission Date: 20060501
  Serious: No
  Sender: FDA-Public Use
  Company Number: 219190

PATIENT
  Age: 59 Year
  Sex: Female

DRUGS (1)
  1. RAPTIVA [Suspect]
     Indication: PSORIASIS
     Dosage: 0.5 ML, 1/WEEK
     Dates: start: 20050901, end: 20051001

REACTIONS (11)
  - APHTHOUS STOMATITIS [None]
  - BLEPHARITIS [None]
  - DYSPHAGIA [None]
  - FUNGAL INFECTION [None]
  - HORDEOLUM [None]
  - ORAL INTAKE REDUCED [None]
  - PERIORBITAL CELLULITIS [None]
  - SCAB [None]
  - SKIN DISCOLOURATION [None]
  - SKIN LESION [None]
  - SWELLING FACE [None]
